FAERS Safety Report 18315404 (Version 4)
Quarter: 2020Q4

REPORT INFORMATION
  Report Type: Spontaneous
  Country: AR (occurrence: AR)
  Receive Date: 20200926
  Receipt Date: 20201028
  Transmission Date: 20210113
  Serious: Yes (Hospitalization, Other)
  Sender: FDA-Public Use
  Company Number: AR-B.I. PHARMACEUTICALS,INC./RIDGEFIELD-2020-BI-049112

PATIENT
  Age: 69 Year
  Sex: Male
  Weight: 75 kg

DRUGS (3)
  1. SILDENAFIL. [Concomitant]
     Active Substance: SILDENAFIL
     Indication: PRODUCT USED FOR UNKNOWN INDICATION
     Route: 065
  2. OFEV [Suspect]
     Active Substance: NINTEDANIB
     Route: 048
  3. OFEV [Suspect]
     Active Substance: NINTEDANIB
     Indication: PRODUCT USED FOR UNKNOWN INDICATION
     Dosage: AS PER MEDICAL ADVICE, THE PATIENT REDUCED THE DOSE TO 150 MG (ONCE DAILY) AND AFTER TWO MONTHS AS T
     Route: 048
     Dates: start: 20190130

REACTIONS (15)
  - Diarrhoea [Recovered/Resolved]
  - Dyspnoea [Recovering/Resolving]
  - Dyspnoea [Recovered/Resolved]
  - Rhinitis [Unknown]
  - Cough [Unknown]
  - Vomiting [Unknown]
  - Diarrhoea [Unknown]
  - Heart rate irregular [Recovered/Resolved]
  - Suspected COVID-19 [Recovered/Resolved]
  - Nausea [Unknown]
  - Pyrexia [Recovered/Resolved]
  - Weight decreased [Unknown]
  - Arthralgia [Unknown]
  - Myalgia [Unknown]
  - Odynophagia [Unknown]

NARRATIVE: CASE EVENT DATE: 201912
